FAERS Safety Report 19133044 (Version 2)
Quarter: 2021Q2

REPORT INFORMATION
  Report Type: Report from Study
  Country: CN (occurrence: CN)
  Receive Date: 20210414
  Receipt Date: 20210426
  Transmission Date: 20210717
  Serious: Yes (Hospitalization)
  Sender: FDA-Public Use
  Company Number: CN-ROCHE-2804170

PATIENT
  Age: 56 Year
  Sex: Male
  Weight: 92 kg

DRUGS (4)
  1. BGB?3111 [Suspect]
     Active Substance: ZANUBRUTINIB
     Indication: B-CELL LYMPHOMA
     Dosage: LAST DOSE ADMINISTER PRIOR TO SAE?30/MAR/2021?TWO 80?MG CAPSULES BY MOUTH TWICE A DAY (160 MG TWICE
     Route: 048
     Dates: start: 20200826
  2. CEFOPERAZONE SODIUM [Concomitant]
     Active Substance: CEFOPERAZONE SODIUM
     Route: 041
     Dates: start: 20210329
  3. OBINUTUZUMAB. [Suspect]
     Active Substance: OBINUTUZUMAB
     Indication: B-CELL LYMPHOMA
     Dosage: LAST DOSE PRIOR TO SAE? 26/FEB/2021?C1D1, C1D8, C1D15, C2D1, C3D1, C4D1, C5D1, C6D1, C5D1, C6D1?ON D
     Route: 042
     Dates: start: 20200826
  4. SULBACTAM SODIUM [Concomitant]
     Active Substance: SULBACTAM SODIUM

REACTIONS (2)
  - Pyrexia [Recovered/Resolved with Sequelae]
  - Pneumonia [Recovered/Resolved with Sequelae]

NARRATIVE: CASE EVENT DATE: 20210401
